FAERS Safety Report 7631550-2 (Version None)
Quarter: 2011Q3

REPORT INFORMATION
  Report Type: 
  Country: None (occurrence: None)
  Receive Date: 20110725
  Receipt Date: 20110715
  Transmission Date: 20111222
  Serious: Yes (Other)
  Sender: FDA-Public Use
  Company Number: JP-ASTELLAS-2011JP004577

PATIENT
  Age: 73 Year
  Sex: Female

DRUGS (1)
  1. FUNGUARD [Suspect]
     Indication: FUNGAL INFECTION
     Dosage: 100 MG, UNKNOWN/D
     Route: 042

REACTIONS (3)
  - CANDIDA SEPSIS [None]
  - DRUG INEFFECTIVE [None]
  - BLOOD UREA INCREASED [None]
